FAERS Safety Report 14832703 (Version 2)
Quarter: 2018Q2

REPORT INFORMATION
  Report Type: Other
  Country: US (occurrence: US)
  Receive Date: 20180501
  Receipt Date: 20180515
  Transmission Date: 20180711
  Serious: Yes (Hospitalization, Other)
  Sender: FDA-Public Use
  Company Number: US-ACORDA-ACO_149337_2018

PATIENT
  Age: 51 Year
  Sex: Female

DRUGS (2)
  1. AMPYRA [Suspect]
     Active Substance: DALFAMPRIDINE
     Indication: MULTIPLE SCLEROSIS
     Dosage: 10 MG, BID
     Route: 065
     Dates: start: 20171122
  2. AVONEX [Suspect]
     Active Substance: INTERFERON BETA-1A
     Indication: MULTIPLE SCLEROSIS
     Dosage: 30MCG, 1 FOR 4 WEEK
     Route: 030
     Dates: start: 20180111

REACTIONS (2)
  - Thrombosis [Unknown]
  - Bladder disorder [Unknown]

NARRATIVE: CASE EVENT DATE: 20180101
